FAERS Safety Report 9170864 (Version 1)
Quarter: 2013Q1

REPORT INFORMATION
  Report Type: Spontaneous
  Country: FR (occurrence: None)
  Receive Date: 20130312
  Receipt Date: 20130312
  Transmission Date: 20140127
  Serious: Yes (Hospitalization)
  Sender: FDA-Public Use
  Company Number: 2012MPI00602

PATIENT
  Age: 57 Year
  Sex: Male

DRUGS (7)
  1. BRENTUXIMAB VEDOTIN [Suspect]
     Indication: HODGKIN^S DISEASE
     Dosage: 1.8MG/KG,Q21D,INTRAVENOUS
     Route: 042
     Dates: start: 20121029
  2. ZYLORIC (ALLOPURINOL) [Concomitant]
  3. TAHOR (ATORVASTATIN CALCIUM) [Concomitant]
  4. KARDEGIC (ACETYISALICYLATE LYSINE, ACETYISALICYLIC ACID) [Concomitant]
  5. BACTRIM [Concomitant]
  6. POLARAMINE (CHLORPHENAMINE MALEATE) [Concomitant]
  7. ZELITREX (VALACICLOVIR HYDROCHLORIDE) [Concomitant]

REACTIONS (2)
  - Bone pain [None]
  - Arthralgia [None]
